FAERS Safety Report 11827707 (Version 1)
Quarter: 2015Q4

REPORT INFORMATION
  Report Type: Spontaneous
  Country: US (occurrence: US)
  Receive Date: 20151211
  Receipt Date: 20151211
  Transmission Date: 20160305
  Serious: No
  Sender: FDA-Public Use
  Company Number: US-BAUSCH-BL-2015-000185

PATIENT
  Sex: Male

DRUGS (3)
  1. XENAZINE [Suspect]
     Active Substance: TETRABENAZINE
     Route: 048
     Dates: start: 20141124
  2. XENAZINE [Suspect]
     Active Substance: TETRABENAZINE
     Route: 048
     Dates: end: 200503
  3. XENAZINE [Suspect]
     Active Substance: TETRABENAZINE
     Indication: HUNTINGTON^S DISEASE
     Route: 048
     Dates: start: 20141114

REACTIONS (4)
  - Restlessness [Recovered/Resolved]
  - Drug ineffective [Not Recovered/Not Resolved]
  - Insomnia [Recovered/Resolved]
  - Condition aggravated [Recovered/Resolved]
